FAERS Safety Report 8942168 (Version 1)
Quarter: 2012Q4

REPORT INFORMATION
  Report Type: 
  Country: JP (occurrence: JP)
  Receive Date: 20121202
  Receipt Date: 20121202
  Transmission Date: 20130627
  Serious: Yes (Other)
  Sender: FDA-Public Use
  Company Number: JP-BRISTOL-MYERS SQUIBB COMPANY-17165572

PATIENT
  Sex: Female

DRUGS (3)
  1. MITOMYCIN-C [Suspect]
     Indication: METASTASES TO LIVER
     Route: 013
  2. FLUOROURACIL [Suspect]
     Indication: METASTASES TO LIVER
     Route: 013
  3. EPIRUBICIN HCL [Suspect]
     Indication: METASTASES TO LIVER
     Route: 013

REACTIONS (1)
  - Vascular pseudoaneurysm [Unknown]
